FAERS Safety Report 9665357 (Version 2)
Quarter: 2013Q4

REPORT INFORMATION
  Report Type: Spontaneous
  Country: FI (occurrence: FI)
  Receive Date: 20131102
  Receipt Date: 20131102
  Transmission Date: 20140711
  Serious: Yes (Hospitalization, Other)
  Sender: FDA-Public Use
  Company Number: FI-MERCK-1011FIN00014

PATIENT
  Age: 72 Year
  Sex: Female

DRUGS (8)
  1. ALENDRONATE SODIUM [Suspect]
     Indication: OSTEOPOROSIS
     Dosage: 70 MG, QW
     Route: 048
     Dates: start: 2008
  2. ALENDRONATE SODIUM [Suspect]
     Dosage: 10 MG, QD
     Route: 048
     Dates: start: 2003, end: 2008
  3. FURESIS [Concomitant]
     Route: 048
  4. KESTINE [Concomitant]
     Route: 048
  5. SERETIDE [Concomitant]
     Route: 055
  6. CALCIUM (UNSPECIFIED) (+) VITAMIN D (UNSPECIFIED) [Concomitant]
     Route: 048
  7. SIMVASTATIN [Concomitant]
     Route: 048
  8. THYROXIN [Concomitant]
     Route: 048

REACTIONS (2)
  - Femur fracture [Unknown]
  - Blood creatine phosphokinase MB increased [Unknown]
